FAERS Safety Report 10497766 (Version 3)
Quarter: 2014Q4

REPORT INFORMATION
  Report Type: Spontaneous
  Country: DE (occurrence: None)
  Receive Date: 20141002
  Receipt Date: 20141121
  Transmission Date: 20150528
  Serious: No
  Sender: FDA-Public Use
  Company Number: DE-LHC-2014083

PATIENT
  Sex: Female

DRUGS (1)
  1. CONOXIA (OXYGEN) (GAS FOR INHALATION) (VERUM) [Suspect]
     Active Substance: OXYGEN
     Indication: OCCUPATIONAL EXPOSURE TO PRODUCT
     Route: 055

REACTIONS (5)
  - Accidental exposure to product [None]
  - Frostbite [None]
  - Ocular hyperaemia [None]
  - Eye swelling [None]
  - Eye burns [None]

NARRATIVE: CASE EVENT DATE: 20140916
